FAERS Safety Report 17943163 (Version 8)
Quarter: 2020Q3

REPORT INFORMATION
  Report Type: Spontaneous
  Country: ES (occurrence: ES)
  Receive Date: 20200625
  Receipt Date: 20200909
  Transmission Date: 20201103
  Serious: Yes (Life-Threatening, Hospitalization, Other)
  Sender: FDA-Public Use
  Company Number: ES-ELI_LILLY_AND_COMPANY-ES202006009361

PATIENT
  Age: 66 Year
  Sex: Male

DRUGS (7)
  1. HALOPERIDOL. [Interacting]
     Active Substance: HALOPERIDOL
     Indication: DELIRIUM
     Dosage: 1 MG, 2X PER DAY
     Route: 048
  2. DULOXETINE HYDROCHLORIDE. [Interacting]
     Active Substance: DULOXETINE HYDROCHLORIDE
     Indication: CERVICAL SPINAL STENOSIS
  3. LOPINAVIR;RITONAVIR [Interacting]
     Active Substance: LOPINAVIR\RITONAVIR
     Indication: COVID-19 TREATMENT
     Dosage: 1 DOSAGE FORM, BID
     Route: 048
  4. LITHIUM. [Interacting]
     Active Substance: LITHIUM
     Indication: BIPOLAR DISORDER
     Dosage: 800 MG, DAILY
     Route: 048
  5. HALOPERIDOL. [Interacting]
     Active Substance: HALOPERIDOL
     Indication: BIPOLAR DISORDER
     Dosage: 1 MG TWICE DAILY
     Route: 065
  6. DULOXETINE HYDROCHLORIDE. [Suspect]
     Active Substance: DULOXETINE HYDROCHLORIDE
     Indication: BIPOLAR DISORDER
     Dosage: 120 MG, PER DAY
     Route: 048
  7. HYDROXYCHLOROQUINE [Suspect]
     Active Substance: HYDROXYCHLOROQUINE
     Indication: COVID-19 TREATMENT
     Dosage: 200 MG, 2X PER DAY
     Route: 048

REACTIONS (16)
  - Serotonin syndrome [Recovering/Resolving]
  - Blood pressure increased [Recovering/Resolving]
  - Hyperhidrosis [Recovering/Resolving]
  - Depressed level of consciousness [Recovering/Resolving]
  - Myoclonus [Recovered/Resolved]
  - Tachycardia [Recovering/Resolving]
  - Delirium [Recovering/Resolving]
  - Clonus [Recovering/Resolving]
  - Blood creatinine increased [Recovering/Resolving]
  - Blood creatine phosphokinase increased [Recovering/Resolving]
  - Drug interaction [Recovered/Resolved]
  - Urinary retention [Recovering/Resolving]
  - Hyperreflexia [Recovering/Resolving]
  - Encephalopathy [Recovering/Resolving]
  - Speech sound disorder [Recovering/Resolving]
  - Off label use [Recovering/Resolving]
